FAERS Safety Report 5839635-8 (Version None)
Quarter: 2008Q3

REPORT INFORMATION
  Report Type: 
  Country: None (occurrence: None)
  Receive Date: 20080811
  Receipt Date: 20080801
  Transmission Date: 20090109
  Serious: Yes (Other)
  Sender: FDA-Public Use
  Company Number: DE-JNJFOC-20080605710

PATIENT
  Sex: Female
  Weight: 49 kg

DRUGS (2)
  1. IMODIUM [Suspect]
     Indication: DIARRHOEA
     Route: 048
  2. DESERT INDIANWHEAT SEED [Concomitant]
     Route: 048

REACTIONS (1)
  - DRUG TOLERANCE [None]
